FAERS Safety Report 7627494-2 (Version None)
Quarter: 2011Q3

REPORT INFORMATION
  Report Type: 
  Country: None (occurrence: None)
  Receive Date: 20110721
  Receipt Date: 20110711
  Transmission Date: 20111222
  Serious: Yes (Other)
  Sender: FDA-Public Use
  Company Number: JP-GILEAD-E2B_00001406

PATIENT
  Age: 40 Year
  Sex: Male

DRUGS (3)
  1. URSO 250 [Concomitant]
     Indication: HEPATITIS B
     Dosage: 300MG PER DAY
     Route: 048
  2. HEPSERA [Suspect]
     Indication: HEPATITIS B
     Dosage: 10MG PER DAY
     Route: 048
  3. BARACLUDE [Suspect]
     Indication: HEPATITIS B
     Dosage: .5MG PER DAY
     Route: 048

REACTIONS (1)
  - ANAEMIA [None]
